FAERS Safety Report 5216622-4 (Version None)
Quarter: 2007Q1

REPORT INFORMATION
  Report Type: 
  Country: None (occurrence: None)
  Receive Date: 20061130
  Receipt Date: 20060807
  Transmission Date: 20070707
  Serious: Yes (Other)
  Sender: FDA-Public Use
  Company Number: US200608002130

PATIENT
  Age: 25 Year
  Sex: Male
  Weight: 128.8 kg

DRUGS (4)
  1. ZYPREXA [Suspect]
  2. ABILIFY [Concomitant]
  3. GEODON [Concomitant]
  4. HALDOL SOLUTAB [Concomitant]

REACTIONS (4)
  - DIABETES MELLITUS [None]
  - HYPERGLYCAEMIA [None]
  - OBESITY [None]
  - WEIGHT INCREASED [None]
